FAERS Safety Report 11785157 (Version 1)
Quarter: 2015Q4

REPORT INFORMATION
  Report Type: Spontaneous
  Country: IT (occurrence: IT)
  Receive Date: 20151130
  Receipt Date: 20151130
  Transmission Date: 20160305
  Serious: Yes (Hospitalization)
  Sender: FDA-Public Use
  Company Number: IT-FRESENIUS KABI-FK201506105

PATIENT
  Age: 77 Year
  Sex: Female

DRUGS (3)
  1. CALCIO LEVOFOLINATO [Suspect]
     Active Substance: LEVOLEUCOVORIN CALCIUM
     Indication: GASTRIC CANCER
     Route: 042
     Dates: start: 20151007, end: 20151007
  2. OXALIPLATIN 5MG/ML CONCENTRATE FOR SOLUTION FOR INFUSION [Suspect]
     Active Substance: OXALIPLATIN
     Indication: GASTRIC CANCER
     Route: 042
     Dates: start: 20151007, end: 20151007
  3. FLUOROURACIL TEVA [Suspect]
     Active Substance: FLUOROURACIL
     Indication: GASTRIC CANCER
     Route: 042
     Dates: start: 20151007, end: 20151007

REACTIONS (3)
  - Angina pectoris [Recovering/Resolving]
  - Hypokinesia [Recovering/Resolving]
  - Electrocardiogram ST segment depression [Recovering/Resolving]

NARRATIVE: CASE EVENT DATE: 20151007
